FAERS Safety Report 8862129 (Version 2)
Quarter: 2012Q4

REPORT INFORMATION
  Report Type: 
  Country: US (occurrence: US)
  Receive Date: 20121026
  Receipt Date: 20121206
  Transmission Date: 20130627
  Serious: Yes (Hospitalization)
  Sender: FDA-Public Use
  Company Number: US-ELI_LILLY_AND_COMPANY-US201210005639

PATIENT
  Age: 47 Year
  Sex: Male

DRUGS (4)
  1. STRATTERA [Suspect]
     Indication: ATTENTION DEFICIT/HYPERACTIVITY DISORDER
     Dosage: 60 mg, qd
     Dates: start: 20090715
  2. STRATTERA [Suspect]
     Dosage: 80 mg, qd
  3. STRATTERA [Suspect]
     Dosage: 100 mg, qd
     Dates: end: 20120715
  4. STRATTERA [Suspect]
     Dosage: 100 mg, qd
     Dates: start: 20121112

REACTIONS (16)
  - Nephrolithiasis [Unknown]
  - Insomnia [Not Recovered/Not Resolved]
  - Dry mouth [Unknown]
  - Peripheral coldness [Unknown]
  - Ejaculation disorder [Unknown]
  - Decreased appetite [Unknown]
  - Weight increased [Unknown]
  - Impulsive behaviour [Unknown]
  - Increased appetite [Unknown]
  - Intentional drug misuse [Unknown]
  - Nasopharyngitis [Unknown]
  - Pyrexia [Not Recovered/Not Resolved]
  - Cough [Unknown]
  - Dehydration [Unknown]
  - Malaise [Unknown]
  - Fatigue [Unknown]
